FAERS Safety Report 6954934-4 (Version None)
Quarter: 2010Q3

REPORT INFORMATION
  Report Type: 
  Country: None (occurrence: None)
  Receive Date: 20100830
  Receipt Date: 20100817
  Transmission Date: 20110219
  Serious: Yes (Hospitalization)
  Sender: FDA-Public Use
  Company Number: PHHY2010DE36949

PATIENT
  Age: 56 Year
  Sex: Female

DRUGS (2)
  1. ZOMETA [Suspect]
     Indication: METASTASES TO BONE
     Dosage: EVERY 4 WEEKS
     Route: 042
     Dates: start: 20020201
  2. FASLODEX [Concomitant]
     Dosage: UNK
     Dates: start: 20070101

REACTIONS (4)
  - ANKLE FRACTURE [None]
  - ANKLE OPERATION [None]
  - MULTIPLE FRACTURES [None]
  - PATELLA FRACTURE [None]
